FAERS Safety Report 7071310-7 (Version None)
Quarter: 2010Q4

REPORT INFORMATION
  Report Type: 
  Country: None (occurrence: None)
  Receive Date: 20101028
  Receipt Date: 20101028
  Transmission Date: 20110411
  Serious: Yes (Disabling, Other)
  Sender: FDA-Public Use
  Company Number: None

PATIENT
  Age: 54 Year
  Sex: Female
  Weight: 108.8633 kg

DRUGS (1)
  1. HUMALOG KWIKPEN [Suspect]
     Indication: TYPE 1 DIABETES MELLITUS
     Dosage: 5 UNITS BEFORE MEALS SQ
     Route: 058

REACTIONS (5)
  - HYPOGLYCAEMIA [None]
  - INCORRECT DOSE ADMINISTERED [None]
  - MEDICATION ERROR [None]
  - PRODUCT PACKAGING ISSUE [None]
  - WRONG DEVICE USED [None]
